FAERS Safety Report 5592198-7 (Version None)
Quarter: 2008Q1

REPORT INFORMATION
  Report Type: 
  Country: None (occurrence: None)
  Receive Date: 20080115
  Receipt Date: 20071019
  Transmission Date: 20080703
  Serious: No
  Sender: FDA-Public Use
  Company Number: US-ABBOTT-07P-163-0421315-00

PATIENT
  Age: 26 Year
  Sex: Male

DRUGS (2)
  1. ADVICOR [Suspect]
     Indication: VERY LOW DENSITY LIPOPROTEIN
     Route: 048
     Dates: start: 20070801, end: 20071019
  2. ADVICOR [Suspect]
     Indication: HIGH DENSITY LIPOPROTEIN DECREASED

REACTIONS (3)
  - DIPLOPIA [None]
  - EYE PAIN [None]
  - MASS [None]
